FAERS Safety Report 7994729-6 (Version None)
Quarter: 2011Q4

REPORT INFORMATION
  Report Type: 
  Country: None (occurrence: None)
  Receive Date: 20111220
  Receipt Date: 20111213
  Transmission Date: 20120403
  Serious: Yes (Hospitalization, Other)
  Sender: FDA-Public Use
  Company Number: US-ABBOTT-11P-163-0857834-00

PATIENT
  Sex: Female

DRUGS (4)
  1. LYRICA [Concomitant]
     Indication: RHEUMATOID ARTHRITIS
  2. HUMIRA [Suspect]
     Indication: RHEUMATOID ARTHRITIS
     Route: 058
     Dates: start: 20070101, end: 20110301
  3. HUMIRA [Suspect]
     Route: 058
     Dates: start: 20110401
  4. CYMBALTA [Concomitant]
     Indication: ANXIETY

REACTIONS (6)
  - MOBILITY DECREASED [None]
  - SPINAL CORD INJURY [None]
  - ARTHRALGIA [None]
  - FALL [None]
  - THROMBOSIS [None]
  - RHEUMATOID ARTHRITIS [None]
